FAERS Safety Report 12231709 (Version 2)
Quarter: 2025Q2

REPORT INFORMATION
  Report Type: Spontaneous
  Country: IT (occurrence: IT)
  Receive Date: 20160401
  Receipt Date: 20250410
  Transmission Date: 20250716
  Serious: Yes (Hospitalization, Other)
  Sender: BIOMARIN
  Company Number: IT-BIOMARINAP-IT-2016-109294

PATIENT

DRUGS (4)
  1. LARONIDASE [Suspect]
     Active Substance: LARONIDASE
     Indication: Mucopolysaccharidosis I
     Dosage: UNK UNK,QW
     Route: 041
     Dates: start: 201401
  2. Calisvit [Concomitant]
     Indication: Product used for unknown indication
     Dosage: 1 DF, QD
  3. LEVETIRACETAM [Concomitant]
     Active Substance: LEVETIRACETAM
     Indication: Product used for unknown indication
  4. LEVETIRACETAM [Concomitant]
     Active Substance: LEVETIRACETAM

REACTIONS (8)
  - Generalised tonic-clonic seizure [Recovered/Resolved]
  - Tremor [Recovered/Resolved]
  - Eye movement disorder [Recovered/Resolved]
  - Loss of consciousness [Recovered/Resolved]
  - Blood pressure decreased [Not Recovered/Not Resolved]
  - Respiratory disorder [Unknown]
  - Pyrexia [Unknown]
  - Irritability [Unknown]

NARRATIVE: CASE EVENT DATE: 20160101
